FAERS Safety Report 15352206 (Version 1)
Quarter: 2018Q3

REPORT INFORMATION
  Report Type: Spontaneous
  Country: CN (occurrence: CN)
  Receive Date: 20180905
  Receipt Date: 20180905
  Transmission Date: 20181010
  Serious: Yes (Other)
  Sender: FDA-Public Use
  Company Number: CN-EPIC PHARMA LLC-2018EPC00401

PATIENT
  Age: 59 Year
  Sex: Male

DRUGS (1)
  1. OXYCODONE HYDROCHLORIDE. [Suspect]
     Active Substance: OXYCODONE HYDROCHLORIDE
     Indication: INDUCTION OF ANAESTHESIA
     Dosage: 0.324 MG/KG, ^INJECTION^ ONCE
     Route: 065

REACTIONS (2)
  - Hypertension [Recovered/Resolved]
  - Heart rate increased [Recovered/Resolved]
